FAERS Safety Report 7022367-0 (Version None)
Quarter: 2010Q3

REPORT INFORMATION
  Report Type: 
  Country: None (occurrence: None)
  Receive Date: 20100930
  Receipt Date: 20100928
  Transmission Date: 20110219
  Serious: Yes (Other)
  Sender: FDA-Public Use
  Company Number: US-PFIZER INC-2010123063

PATIENT

DRUGS (2)
  1. ARGATROBAN [Suspect]
     Dosage: 2 UG/KG/MIN
  2. ARGATROBAN [Suspect]
     Dosage: 0.5 UG/KG/MIN

REACTIONS (1)
  - ACTIVATED PARTIAL THROMBOPLASTIN TIME PROLONGED [None]
